FAERS Safety Report 17151063 (Version 1)
Quarter: 2019Q4

REPORT INFORMATION
  Report Type: Spontaneous
  Country: US (occurrence: US)
  Receive Date: 20191213
  Receipt Date: 20191213
  Transmission Date: 20200122
  Serious: No
  Sender: FDA-Public Use
  Company Number: US-ASTRAZENECA-2019SF63551

PATIENT
  Sex: Male

DRUGS (1)
  1. TAGRISSO [Suspect]
     Active Substance: OSIMERTINIB
     Dosage: 80.0MG UNKNOWN
     Route: 048

REACTIONS (7)
  - Insomnia [Unknown]
  - Skin atrophy [Unknown]
  - Nail disorder [Unknown]
  - Skin exfoliation [Unknown]
  - Wound [Unknown]
  - Pruritus [Unknown]
  - Alopecia [Unknown]
